FAERS Safety Report 17294867 (Version 1)
Quarter: 2020Q1

REPORT INFORMATION
  Report Type: Other
  Country: NL (occurrence: NL)
  Receive Date: 20200121
  Receipt Date: 20200121
  Transmission Date: 20200409
  Serious: Yes (Other)
  Sender: FDA-Public Use
  Company Number: NL-ASPEN-GLO2020NL000334

PATIENT
  Age: 7 Month
  Sex: Female
  Weight: 8 kg

DRUGS (3)
  1. DEXAMETHASONE. [Suspect]
     Active Substance: DEXAMETHASONE
     Indication: MENINGITIS
     Dosage: 1MG QID (EVERY 6 HOURS)
     Route: 065
     Dates: start: 20191204, end: 20191206
  2. ACICLOVIR [Concomitant]
     Active Substance: ACYCLOVIR
     Indication: PRODUCT USED FOR UNKNOWN INDICATION
     Route: 065
  3. CEFTRIAXON [Concomitant]
     Active Substance: CEFTRIAXONE
     Indication: PRODUCT USED FOR UNKNOWN INDICATION
     Route: 065

REACTIONS (5)
  - Visual impairment [Recovered/Resolved]
  - Heart rate irregular [Recovered/Resolved]
  - Hypokinesia [Recovered/Resolved]
  - Hypothermia [Recovered/Resolved]
  - Somnolence [Recovered/Resolved]

NARRATIVE: CASE EVENT DATE: 20191205
